FAERS Safety Report 16047954 (Version 2)
Quarter: 2019Q2

REPORT INFORMATION
  Report Type: Spontaneous
  Country: US (occurrence: US)
  Receive Date: 20190307
  Receipt Date: 20190409
  Transmission Date: 20190711
  Serious: No
  Sender: FDA-Public Use
  Company Number: US-009507513-1902USA009151

PATIENT
  Age: 70 Year
  Sex: Female

DRUGS (4)
  1. ASMANEX [Suspect]
     Active Substance: MOMETASONE FUROATE
     Indication: ASTHMA
     Dosage: ONE (220MICROGRAM) PUFF TWICE DAILY
     Route: 048
     Dates: start: 20190211, end: 20190215
  2. METFORMIN [Concomitant]
     Active Substance: METFORMIN HYDROCHLORIDE
  3. SIMVASTATIN. [Concomitant]
     Active Substance: SIMVASTATIN
  4. LISINOPRIL. [Concomitant]
     Active Substance: LISINOPRIL
     Dosage: UNK

REACTIONS (9)
  - Lip swelling [Recovering/Resolving]
  - Fungal infection [Recovering/Resolving]
  - Eye swelling [Recovering/Resolving]
  - Skin laceration [Recovering/Resolving]
  - Urticaria [Recovering/Resolving]
  - Lip pain [Recovering/Resolving]
  - Poor quality sleep [Recovering/Resolving]
  - Swelling face [Recovering/Resolving]
  - Therapeutic response unexpected [Unknown]

NARRATIVE: CASE EVENT DATE: 20190215
